FAERS Safety Report 5147316-1 (Version None)
Quarter: 2006Q4

REPORT INFORMATION
  Report Type: 
  Country: None (occurrence: None)
  Receive Date: 20061103
  Receipt Date: 20061025
  Transmission Date: 20070319
  Serious: Yes (Other)
  Sender: FDA-Public Use
  Company Number: 2006131641

PATIENT
  Age: 45 Year
  Sex: Female
  Weight: 49.8957 kg

DRUGS (1)
  1. XALATAN [Suspect]
     Indication: GLAUCOMA

REACTIONS (2)
  - EYELID BLEEDING [None]
  - EYELID DISORDER [None]
